FAERS Safety Report 8223788-0 (Version None)
Quarter: 2012Q1

REPORT INFORMATION
  Report Type: 
  Country: None (occurrence: None)
  Receive Date: 20120321
  Receipt Date: 20120321
  Transmission Date: 20120608
  Serious: Yes (Hospitalization)
  Sender: FDA-Public Use
  Company Number: None

PATIENT
  Age: 67 Year
  Sex: Male
  Weight: 91.625 kg

DRUGS (2)
  1. ELOXATIN [Suspect]
     Indication: COLON CANCER METASTATIC
     Dosage: 130MG
     Route: 041
     Dates: start: 20111107, end: 20111207
  2. ELOXATIN [Suspect]

REACTIONS (5)
  - CONFUSIONAL STATE [None]
  - BLOOD CREATININE INCREASED [None]
  - DYSPNOEA [None]
  - HAEMODIALYSIS [None]
  - TREMOR [None]
